FAERS Safety Report 9842438 (Version 1)
Quarter: 2014Q1

REPORT INFORMATION
  Report Type: Spontaneous
  Country: US (occurrence: US)
  Receive Date: 20140124
  Receipt Date: 20140124
  Transmission Date: 20141002
  Serious: No
  Sender: FDA-Public Use
  Company Number: US-GILEAD-2011-0040957

PATIENT
  Age: 63 Year
  Sex: Female

DRUGS (11)
  1. RANEXA [Suspect]
     Indication: ANGINA PECTORIS
     Route: 048
  2. NITROSTAT [Concomitant]
  3. NIASPAN [Concomitant]
  4. ATIVAN [Concomitant]
  5. ASPIRIN [Concomitant]
  6. ENALAPRIL [Concomitant]
  7. BYETTA [Concomitant]
  8. VIVELLE-DOT [Concomitant]
  9. IBUPROFEN [Concomitant]
  10. SYNTHROID [Concomitant]
  11. CALCIUM [Concomitant]

REACTIONS (1)
  - Fatigue [Unknown]
